FAERS Safety Report 7684128-9 (Version None)
Quarter: 2011Q3

REPORT INFORMATION
  Report Type: 
  Country: None (occurrence: None)
  Receive Date: 20110815
  Receipt Date: 20110804
  Transmission Date: 20111222
  Serious: Yes (Hospitalization)
  Sender: FDA-Public Use
  Company Number: US-BAUSCH-2011BL005262

PATIENT
  Age: 26 Year
  Sex: Male

DRUGS (5)
  1. INFLIXIMAB [Concomitant]
     Indication: CROHN'S DISEASE
     Route: 042
  2. METHOTREXATE [Suspect]
     Indication: CROHN'S DISEASE
  3. PREDNISOLONE [Suspect]
     Indication: CROHN'S DISEASE
  4. AZATHIOPRINE [Suspect]
     Indication: CROHN'S DISEASE
  5. METHOTREXATE [Suspect]

REACTIONS (1)
  - BASAL CELL CARCINOMA [None]
